FAERS Safety Report 14461153 (Version 1)
Quarter: 2018Q1

REPORT INFORMATION
  Report Type: Spontaneous
  Country: US (occurrence: US)
  Receive Date: 20180130
  Receipt Date: 20180130
  Transmission Date: 20180509
  Serious: Yes (Hospitalization, Other)
  Sender: FDA-Public Use
  Company Number: US-PFIZER INC-2018037927

PATIENT
  Age: 63 Year
  Sex: Female

DRUGS (1)
  1. XELJANZ XR [Suspect]
     Active Substance: TOFACITINIB CITRATE
     Dosage: 11 MG, 1X/DAY (QD)
     Route: 048

REACTIONS (4)
  - Acute respiratory failure [Unknown]
  - Hypercapnia [Unknown]
  - Drug dose omission [Unknown]
  - Hypoxia [Unknown]

NARRATIVE: CASE EVENT DATE: 20180116
